FAERS Safety Report 6268351-6 (Version None)
Quarter: 2009Q3

REPORT INFORMATION
  Report Type: 
  Country: None (occurrence: None)
  Receive Date: 20090715
  Receipt Date: 20090706
  Transmission Date: 20100115
  Serious: Yes (Other)
  Sender: FDA-Public Use
  Company Number: PHEH2009US07116

PATIENT
  Sex: Male

DRUGS (3)
  1. GLEEVEC [Suspect]
     Indication: GASTROINTESTINAL CARCINOMA
     Dosage: UNK
     Dates: start: 20020101
  2. GLEEVEC [Suspect]
     Indication: GASTRIC CANCER
  3. GLEEVEC [Suspect]
     Indication: HEPATIC NEOPLASM

REACTIONS (5)
  - ABNORMAL FAECES [None]
  - DIARRHOEA [None]
  - ERYTHEMA [None]
  - PERIRECTAL ABSCESS [None]
  - SKIN BURNING SENSATION [None]
